FAERS Safety Report 4365221-5 (Version None)
Quarter: 2004Q2

REPORT INFORMATION
  Report Type: 
  Country: None (occurrence: None)
  Receive Date: 20040525
  Receipt Date: 20040324
  Transmission Date: 20050107
  Serious: No
  Sender: FDA-Public Use
  Company Number: PHEH2004US03417

PATIENT
  Age: 44 Year
  Sex: Female

DRUGS (2)
  1. ZELNORM [Suspect]
     Dates: start: 20040322
  2. SYNTHROID [Concomitant]

REACTIONS (3)
  - MUSCLE SPASMS [None]
  - PAIN [None]
  - SWELLING [None]
